FAERS Safety Report 4616998-2 (Version None)
Quarter: 2005Q1

REPORT INFORMATION
  Report Type: 
  Country: None (occurrence: None)
  Receive Date: 20050318
  Receipt Date: 20050303
  Transmission Date: 20050727
  Serious: Yes (Hospitalization)
  Sender: FDA-Public Use
  Company Number: ENTC2005-0068

PATIENT
  Age: 74 Year
  Sex: Female

DRUGS (5)
  1. STALEVO 100 [Suspect]
     Indication: PARKINSON'S DISEASE
     Dosage: SEE IMAGE
     Route: 048
  2. COMTAN [Concomitant]
     Indication: PARKINSON'S DISEASE
     Dosage: ORAL
     Route: 048
     Dates: start: 20041201, end: 20050101
  3. REQUIP [Concomitant]
  4. PROLOPA [Concomitant]
  5. FOSAMAX [Concomitant]

REACTIONS (4)
  - COLITIS [None]
  - DIARRHOEA [None]
  - NEUROLOGICAL SYMPTOM [None]
  - REFUSAL OF EXAMINATION [None]
